FAERS Safety Report 7088016-0 (Version None)
Quarter: 2010Q4

REPORT INFORMATION
  Report Type: 
  Country: None (occurrence: None)
  Receive Date: 20101001
  Receipt Date: 20100908
  Transmission Date: 20110411
  Serious: No
  Sender: FDA-Public Use
  Company Number: 2010-00803

PATIENT
  Age: 44 Year
  Sex: Male
  Weight: 70.3075 kg

DRUGS (4)
  1. ZICAM COLD REMEDY NASAL GEL [Suspect]
     Dosage: ONE DOSE
     Dates: start: 20100906, end: 20100906
  2. WELLBUTRIN [Concomitant]
  3. EFFEXOR [Concomitant]
  4. SYNTHROID [Concomitant]

REACTIONS (2)
  - AGEUSIA [None]
  - ANOSMIA [None]
